FAERS Safety Report 8810210 (Version 1)
Quarter: 2012Q4

REPORT INFORMATION
  Report Type: 
  Country: US (occurrence: US)
  Receive Date: 20120926
  Receipt Date: 20120926
  Transmission Date: 20130627
  Serious: No
  Sender: FDA-Public Use
  Company Number: US-009507513-1209USA005947

PATIENT
  Age: 53 Year
  Sex: Female

DRUGS (1)
  1. SAPHRIS [Suspect]

REACTIONS (3)
  - Dysphagia [Unknown]
  - Hypoaesthesia oral [Unknown]
  - Pharyngeal hypoaesthesia [Unknown]
